FAERS Safety Report 6139753-3 (Version None)
Quarter: 2009Q2

REPORT INFORMATION
  Report Type: 
  Country: None (occurrence: None)
  Receive Date: 20090401
  Receipt Date: 20090324
  Transmission Date: 20091009
  Serious: Yes (Hospitalization)
  Sender: FDA-Public Use
  Company Number: A0726793B

PATIENT
  Sex: Male
  Weight: 4 kg

DRUGS (2)
  1. PAXIL [Suspect]
     Indication: DEPRESSION
     Dosage: 30MG PER DAY
     Dates: end: 20080701
  2. VITAMIN TAB [Concomitant]
     Dosage: 1UNIT PER DAY
     Dates: start: 20080501

REACTIONS (3)
  - DRUG EXPOSURE DURING PREGNANCY [None]
  - GLUCOSE-6-PHOSPHATE DEHYDROGENASE DEFICIENCY [None]
  - JAUNDICE [None]
